FAERS Safety Report 21292870 (Version 1)
Quarter: 2022Q3

REPORT INFORMATION
  Report Type: Spontaneous
  Country: FR (occurrence: FR)
  Receive Date: 20220905
  Receipt Date: 20220905
  Transmission Date: 20221027
  Serious: Yes (Hospitalization)
  Sender: FDA-Public Use
  Company Number: None

PATIENT
  Age: 41 Year
  Sex: Male
  Weight: 110 kg

DRUGS (5)
  1. PANTOPRAZOLE [Suspect]
     Active Substance: PANTOPRAZOLE
     Indication: Prophylaxis
     Dosage: UNIT DOSE : 40 MG , FREQUENCY TIME : 1 DAY  , DURATION : 3 DAY
     Dates: start: 20220623, end: 20220626
  2. PANTOPRAZOLE [Suspect]
     Active Substance: PANTOPRAZOLE
     Dosage: UNIT DOSE :40 MG   , FREQUENCY TIME : 1 DAY   , DURATION : 3 DAY
     Dates: start: 20220619, end: 20220622
  3. AZACTAM [Suspect]
     Active Substance: AZTREONAM
     Indication: Septic shock
     Dosage: FORM STRENGTH : 1 G, POWDER AND SOLUTION FOR PARENTERAL USE  , UNIT DOSE : 8 GRAM   , FREQUENCY TIME
     Dates: start: 20220609, end: 20220625
  4. METRONIDAZOLE [Suspect]
     Active Substance: METRONIDAZOLE
     Indication: Septic shock
     Dosage: FORM STRENGTH :  0.5 PER CENT, SOLUTION FOR INJECTION FOR INFUSION IN A POCKET , UNIT DOSE : 1.5 GRA
     Dates: start: 20220619, end: 20220625
  5. LINEZOLID [Suspect]
     Active Substance: LINEZOLID
     Indication: Septic shock
     Dosage: FORM STRENGTH : 2 MG/ML, UNIT DOSE : 1.2 GRAM  , FREQUENCY TIME : 1 DAY  , DURATION : 7 DAYS
     Dates: start: 20220619, end: 20220626

REACTIONS (4)
  - Eosinophilia [Recovering/Resolving]
  - Arthralgia [Recovered/Resolved]
  - Pyrexia [Recovered/Resolved]
  - Rash maculo-papular [Recovered/Resolved]

NARRATIVE: CASE EVENT DATE: 20220629
